FAERS Safety Report 26191534 (Version 1)
Quarter: 2025Q4

REPORT INFORMATION
  Report Type: Spontaneous
  Country: EU (occurrence: EU)
  Receive Date: 20251223
  Receipt Date: 20251223
  Transmission Date: 20260117
  Serious: Yes (Hospitalization)
  Sender: MYLAN
  Company Number: None

PATIENT
  Age: 58 Year
  Sex: Female
  Weight: 61 kg

DRUGS (24)
  1. DEXAMETHASONE [Suspect]
     Active Substance: DEXAMETHASONE
     Indication: Hodgkin^s disease
     Dosage: 40 MILLIGRAM, CYCLE
     Route: 061
     Dates: start: 20250508, end: 20250511
  2. DEXAMETHASONE [Suspect]
     Active Substance: DEXAMETHASONE
     Dosage: 40 MILLIGRAM, CYCLE
     Route: 048
     Dates: start: 20250508, end: 20250511
  3. DEXAMETHASONE [Suspect]
     Active Substance: DEXAMETHASONE
     Dosage: 40 MILLIGRAM, CYCLE
     Route: 048
     Dates: start: 20250508, end: 20250511
  4. DEXAMETHASONE [Suspect]
     Active Substance: DEXAMETHASONE
     Dosage: 40 MILLIGRAM, CYCLE
     Route: 061
     Dates: start: 20250508, end: 20250511
  5. ETOPOSIDE [Suspect]
     Active Substance: ETOPOSIDE
     Indication: Hodgkin^s disease
     Dosage: 270 MILLIGRAM, CYCLE
     Dates: start: 20250508, end: 20250510
  6. ETOPOSIDE [Suspect]
     Active Substance: ETOPOSIDE
     Dosage: 270 MILLIGRAM, CYCLE
     Route: 042
     Dates: start: 20250508, end: 20250510
  7. ETOPOSIDE [Suspect]
     Active Substance: ETOPOSIDE
     Dosage: 270 MILLIGRAM, CYCLE
     Route: 042
     Dates: start: 20250508, end: 20250510
  8. ETOPOSIDE [Suspect]
     Active Substance: ETOPOSIDE
     Dosage: 270 MILLIGRAM, CYCLE
     Dates: start: 20250508, end: 20250510
  9. BRENTUXIMAB VEDOTIN [Suspect]
     Active Substance: BRENTUXIMAB VEDOTIN
     Indication: Hodgkin^s disease
     Dosage: 140 MILLIGRAM, CYCLE
     Dates: start: 20250507, end: 20250507
  10. BRENTUXIMAB VEDOTIN [Suspect]
     Active Substance: BRENTUXIMAB VEDOTIN
     Dosage: 140 MILLIGRAM, CYCLE
     Route: 042
     Dates: start: 20250507, end: 20250507
  11. BRENTUXIMAB VEDOTIN [Suspect]
     Active Substance: BRENTUXIMAB VEDOTIN
     Dosage: 140 MILLIGRAM, CYCLE
     Route: 042
     Dates: start: 20250507, end: 20250507
  12. BRENTUXIMAB VEDOTIN [Suspect]
     Active Substance: BRENTUXIMAB VEDOTIN
     Dosage: 140 MILLIGRAM, CYCLE
     Dates: start: 20250507, end: 20250507
  13. DOXORUBICIN [Suspect]
     Active Substance: DOXORUBICIN
     Indication: Hodgkin^s disease
     Dosage: 72 MILLIGRAM, CYCLE
     Dates: start: 20250508, end: 20250508
  14. DOXORUBICIN [Suspect]
     Active Substance: DOXORUBICIN
     Dosage: 72 MILLIGRAM, CYCLE
     Route: 042
     Dates: start: 20250508, end: 20250508
  15. DOXORUBICIN [Suspect]
     Active Substance: DOXORUBICIN
     Dosage: 72 MILLIGRAM, CYCLE
     Route: 042
     Dates: start: 20250508, end: 20250508
  16. DOXORUBICIN [Suspect]
     Active Substance: DOXORUBICIN
     Dosage: 72 MILLIGRAM, CYCLE
     Dates: start: 20250508, end: 20250508
  17. CYCLOPHOSPHAMIDE [Suspect]
     Active Substance: CYCLOPHOSPHAMIDE
     Indication: Hodgkin^s disease
     Dosage: 2250 MILLIGRAM, CYCLE
     Dates: start: 20250508, end: 20250508
  18. CYCLOPHOSPHAMIDE [Suspect]
     Active Substance: CYCLOPHOSPHAMIDE
     Dosage: 2250 MILLIGRAM, CYCLE
     Route: 042
     Dates: start: 20250508, end: 20250508
  19. CYCLOPHOSPHAMIDE [Suspect]
     Active Substance: CYCLOPHOSPHAMIDE
     Dosage: 2250 MILLIGRAM, CYCLE
     Route: 042
     Dates: start: 20250508, end: 20250508
  20. CYCLOPHOSPHAMIDE [Suspect]
     Active Substance: CYCLOPHOSPHAMIDE
     Dosage: 2250 MILLIGRAM, CYCLE
     Dates: start: 20250508, end: 20250508
  21. DACARBAZINE [Suspect]
     Active Substance: DACARBAZINE
     Indication: Hodgkin^s disease
     Dosage: 450 MILLIGRAM, CYCLE
     Dates: start: 20250509, end: 20250510
  22. DACARBAZINE [Suspect]
     Active Substance: DACARBAZINE
     Dosage: 450 MILLIGRAM, CYCLE
     Route: 042
     Dates: start: 20250509, end: 20250510
  23. DACARBAZINE [Suspect]
     Active Substance: DACARBAZINE
     Dosage: 450 MILLIGRAM, CYCLE
     Route: 042
     Dates: start: 20250509, end: 20250510
  24. DACARBAZINE [Suspect]
     Active Substance: DACARBAZINE
     Dosage: 450 MILLIGRAM, CYCLE
     Dates: start: 20250509, end: 20250510

REACTIONS (3)
  - Febrile neutropenia [Recovered/Resolved]
  - Diarrhoea [Recovered/Resolved]
  - Abdominal pain [Recovered/Resolved]

NARRATIVE: CASE EVENT DATE: 20250516
